FAERS Safety Report 20762833 (Version 1)
Quarter: 2022Q2

REPORT INFORMATION
  Report Type: Spontaneous
  Country: US (occurrence: None)
  Receive Date: 20220427
  Receipt Date: 20220427
  Transmission Date: 20220721
  Serious: Yes (Hospitalization)
  Sender: FDA-Public Use
  Company Number: None

PATIENT
  Age: 17 Year
  Sex: Male
  Weight: 76 kg

DRUGS (3)
  1. AMNESTEEM [Suspect]
     Active Substance: ISOTRETINOIN
     Dosage: FREQUENCY : TWICE A DAY;?
     Route: 002
  2. GUANFACINE [Concomitant]
     Active Substance: GUANFACINE
  3. VITAMIN D [Suspect]
     Active Substance: VITAMIN D NOS

REACTIONS (6)
  - Abnormal behaviour [None]
  - Gender dysphoria [None]
  - Intentional self-injury [None]
  - Overdose [None]
  - Depressed level of consciousness [None]
  - Suicide attempt [None]

NARRATIVE: CASE EVENT DATE: 20220427
